FAERS Safety Report 5778675-4 (Version None)
Quarter: 2008Q2

REPORT INFORMATION
  Report Type: 
  Country: None (occurrence: None)
  Receive Date: 20080619
  Receipt Date: 20080609
  Transmission Date: 20081010
  Serious: Yes (Other)
  Sender: FDA-Public Use
  Company Number: B0524741A

PATIENT
  Age: 86 Year
  Sex: Male

DRUGS (6)
  1. ARIXTRA [Suspect]
     Indication: THROMBOSIS PROPHYLAXIS
     Dosage: 2.5MG PER DAY
     Route: 058
     Dates: start: 20080129, end: 20080202
  2. PAROXETINE HCL [Suspect]
     Indication: DRUG USE FOR UNKNOWN INDICATION
     Dosage: 20MG PER DAY
     Route: 058
  3. PLAVIX [Suspect]
     Route: 048
  4. AMLODIPINE [Concomitant]
     Dosage: 5MG PER DAY
     Route: 048
  5. NEXIUM [Concomitant]
     Dosage: 40MG PER DAY
     Route: 048
  6. XANAX [Concomitant]
     Route: 048

REACTIONS (4)
  - DRUG INTERACTION [None]
  - HAEMOGLOBIN DECREASED [None]
  - MUSCLE HAEMORRHAGE [None]
  - OEDEMA PERIPHERAL [None]
